FAERS Safety Report 11227229 (Version 2)
Quarter: 2015Q4

REPORT INFORMATION
  Report Type: Report from Study
  Country: ES (occurrence: ES)
  Receive Date: 20150630
  Receipt Date: 20151111
  Transmission Date: 20160304
  Serious: Yes (Hospitalization, Other)
  Sender: FDA-Public Use
  Company Number: PHHY2015ES076873

PATIENT
  Age: 21 Year
  Sex: Male
  Weight: 100 kg

DRUGS (2)
  1. SOM230 [Suspect]
     Active Substance: PASIREOTIDE
     Indication: ACROMEGALY
     Dosage: 40 MG, UNK
     Route: 030
     Dates: start: 20140804
  2. SOM230 [Suspect]
     Active Substance: PASIREOTIDE
     Dosage: 60 MG, PER 28 DAYS
     Route: 030
     Dates: start: 20141216, end: 20150622

REACTIONS (2)
  - Cholecystitis [Recovered/Resolved]
  - Cholelithiasis [Unknown]

NARRATIVE: CASE EVENT DATE: 20150601
